FAERS Safety Report 21283567 (Version 1)
Quarter: 2022Q3

REPORT INFORMATION
  Report Type: Spontaneous
  Country: US (occurrence: None)
  Receive Date: 20220901
  Receipt Date: 20220901
  Transmission Date: 20221027
  Serious: Yes (Other)
  Sender: FDA-Public Use
  Company Number: None

PATIENT
  Age: 57 Year
  Sex: Female

DRUGS (2)
  1. BOTOX [Suspect]
     Active Substance: ONABOTULINUMTOXINA
     Indication: Migraine
     Dosage: 200 UNIT  INJECTION? ?INJECT 155 UNITS PER MIGRAINE PROTOCOL EVERY 90 DAYS?
     Route: 050
     Dates: start: 20180316
  2. BOTOX [Suspect]
     Active Substance: ONABOTULINUMTOXINA
     Dosage: OTHER QUANTITY : 155 UNITS;?FREQUENCY : AS DIRECTED;?OTHER ROUTE : INJECTION;?
     Route: 050

REACTIONS (4)
  - COVID-19 [None]
  - Renal surgery [None]
  - Condition aggravated [None]
  - Therapy interrupted [None]

NARRATIVE: CASE EVENT DATE: 20220804
